FAERS Safety Report 10066595 (Version 7)
Quarter: 2015Q1

REPORT INFORMATION
  Report Type: Report from Study
  Country: CA (occurrence: CA)
  Receive Date: 20140408
  Receipt Date: 20150102
  Transmission Date: 20150720
  Serious: Yes (Other)
  Sender: FDA-Public Use
  Company Number: PHHY2014CA032894

PATIENT
  Age: 72 Year
  Sex: Male

DRUGS (5)
  1. SANDOSTATIN LAR DEPOT [Suspect]
     Active Substance: OCTREOTIDE ACETATE
     Dosage: 30 MG, EVERY 3 WEEKS
     Route: 030
     Dates: start: 2014, end: 20141212
  2. SANDOSTATIN LAR DEPOT [Suspect]
     Active Substance: OCTREOTIDE ACETATE
     Dosage: 30 MG, QMO
     Route: 030
     Dates: start: 20140407
  3. SANDOSTATIN LAR DEPOT [Suspect]
     Active Substance: OCTREOTIDE ACETATE
     Indication: SMALL INTESTINE CARCINOMA METASTATIC
     Dosage: 30 MG, QMO
     Route: 030
     Dates: start: 20140106
  4. MAVIK [Concomitant]
     Active Substance: TRANDOLAPRIL
     Indication: HYPERTENSION
     Route: 065
  5. BISOPROLOL [Concomitant]
     Active Substance: BISOPROLOL
     Indication: HYPERTENSION
     Route: 065

REACTIONS (10)
  - Abdominal pain [Unknown]
  - Loss of consciousness [Unknown]
  - Bladder neoplasm [Unknown]
  - Hypothermia [Unknown]
  - Malignant neoplasm progression [Unknown]
  - Blood pressure fluctuation [Unknown]
  - Dizziness postural [Unknown]
  - Angina pectoris [Unknown]
  - Blood pressure systolic increased [Unknown]
  - Dizziness [Unknown]

NARRATIVE: CASE EVENT DATE: 2014
